FAERS Safety Report 18643572 (Version 1)
Quarter: 2020Q4

REPORT INFORMATION
  Report Type: Spontaneous
  Country: US (occurrence: US)
  Receive Date: 20201219
  Receipt Date: 20201219
  Transmission Date: 20210114
  Serious: Yes (Hospitalization)
  Sender: FDA-Public Use
  Company Number: None

PATIENT
  Sex: Male
  Weight: 113.9 kg

DRUGS (5)
  1. HYDROCORTISONE (10483) [Suspect]
     Active Substance: HYDROCORTISONE
     Dates: end: 20200914
  2. METHOTREXATE. [Concomitant]
     Active Substance: METHOTREXATE
     Dates: end: 20201130
  3. PREDNISONE. [Concomitant]
     Active Substance: PREDNISONE
  4. MERCAPTOPURINE. [Concomitant]
     Active Substance: MERCAPTOPURINE
     Dates: end: 20201206
  5. VINCRISTINE SULFATE. [Concomitant]
     Active Substance: VINCRISTINE SULFATE
     Dates: end: 20200914

REACTIONS (7)
  - Cough [None]
  - Dyspnoea [None]
  - Fatigue [None]
  - Chills [None]
  - Tachycardia [None]
  - Shock [None]
  - Pyrexia [None]

NARRATIVE: CASE EVENT DATE: 20201207
